FAERS Safety Report 19662565 (Version 2)
Quarter: 2021Q3

REPORT INFORMATION
  Report Type: Report from Study
  Country: US (occurrence: US)
  Receive Date: 20210806
  Receipt Date: 20210909
  Transmission Date: 20211014
  Serious: No
  Sender: FDA-Public Use
  Company Number: US-ACADIA PHARMACEUTICALS INC.-ACA-2021-PIM-002585

PATIENT
  Sex: Male

DRUGS (46)
  1. SINGULAIR [Concomitant]
     Active Substance: MONTELUKAST SODIUM
     Dosage: 10 MILLIGRAM, QD IN EVENING
     Route: 048
     Dates: start: 20190611
  2. METFORMIN HCL [Concomitant]
     Active Substance: METFORMIN HYDROCHLORIDE
     Dosage: 1000 MILLIGRAM, BID WITH MORNING AND EVENING MEALS
     Route: 048
     Dates: start: 20191014
  3. GLIPIZIDE. [Concomitant]
     Active Substance: GLIPIZIDE
     Dosage: 2.5 MILLIGRAM, QD WITH BREAKFAST
     Route: 048
     Dates: start: 20190722
  4. CARBIDOPA/LEVODOPA [Concomitant]
     Active Substance: CARBIDOPA\LEVODOPA
     Dosage: 25 MG/100 MG, 1 AND HALF TAB 4 TIMES A DAY
     Dates: start: 20201120
  5. VITAMIN B12 [VITAMIN B12 NOS] [Concomitant]
     Active Substance: CYANOCOBALAMIN
     Dosage: 1000 MCG, QD
     Route: 048
     Dates: start: 20201030
  6. LISINOPRIL. [Concomitant]
     Active Substance: LISINOPRIL
     Dosage: 2.5 MG QD
     Route: 048
  7. NITROGLYCERIN. [Concomitant]
     Active Substance: NITROGLYCERIN
     Dosage: 0.3 MILLIGRAM, PLACE 1 TAB AT FIRST SIGN OF ATTACK
     Route: 060
  8. ALLERGY RELIEF [CETIRIZINE HYDROCHLORIDE] [Concomitant]
     Dosage: 10 MILLIGRAM, QD
     Route: 048
  9. PRAVASTATIN. [Concomitant]
     Active Substance: PRAVASTATIN
     Dosage: 20 MILLIGRAM, QD
     Route: 048
     Dates: start: 20200121
  10. LOVAZA [Concomitant]
     Active Substance: OMEGA-3-ACID ETHYL ESTERS
     Dosage: 1 GRAM, QD
     Route: 048
  11. ELIQUIS [Concomitant]
     Active Substance: APIXABAN
     Dosage: 5 MILLIGRAM, BID
     Route: 048
     Dates: start: 20191007
  12. PANTOPRAZOLE SODIUM. [Concomitant]
     Active Substance: PANTOPRAZOLE SODIUM
     Dosage: 40 MILLIGRAM, QD
     Route: 048
     Dates: start: 20190128
  13. FARXIGA [Concomitant]
     Active Substance: DAPAGLIFLOZIN PROPANEDIOL
     Dosage: 5 MILLIGRAM, QD IN MORNING
     Route: 048
     Dates: start: 20201113
  14. NUPLAZID [Suspect]
     Active Substance: PIMAVANSERIN TARTRATE
     Indication: HALLUCINATION
     Dosage: 34 MILLIGRAM, QD
     Route: 048
     Dates: start: 20200910, end: 20210728
  15. NUPLAZID [Suspect]
     Active Substance: PIMAVANSERIN TARTRATE
     Indication: DELUSION
  16. OMEPRAZOLE. [Concomitant]
     Active Substance: OMEPRAZOLE
     Dosage: 20 MILLIGRAM, BID BEFORE A MEAL
     Dates: start: 20190706
  17. ELIQUIS [Concomitant]
     Active Substance: APIXABAN
     Dosage: 5 MILLIGRAM, BID
     Route: 048
     Dates: start: 20200727
  18. COLACE [Concomitant]
     Active Substance: DOCUSATE SODIUM
     Dosage: 100 MILLIGRAM, BID AT BEDTIME AS NEEDED
     Dates: start: 20191011
  19. MECLIZINE [MECLOZINE HYDROCHLORIDE] [Concomitant]
     Active Substance: MECLIZINE HYDROCHLORIDE
     Dosage: 25 MILLIGRAM, QD, AS NEEDED
     Route: 048
  20. GABAPENTIN. [Concomitant]
     Active Substance: GABAPENTIN
     Dosage: 100 MILLIGRAM, TID
     Route: 048
  21. VITAMIN D3 [Concomitant]
     Active Substance: CHOLECALCIFEROL
     Dosage: 1000 UNIT, 2 TAB QD
     Dates: start: 20190524
  22. POTASSIUM CHLORIDE. [Concomitant]
     Active Substance: POTASSIUM CHLORIDE
     Dosage: 20 MEQ QD WITH FOOD
     Route: 048
     Dates: start: 20190722
  23. POTASSIUM CHLORIDE. [Concomitant]
     Active Substance: POTASSIUM CHLORIDE
     Dosage: 20 MEQ QD WITH FOOD
     Route: 048
     Dates: start: 20200902
  24. GLIPIZIDE. [Concomitant]
     Active Substance: GLIPIZIDE
     Dosage: 5 MILLIGRAM, QD WITH BREAKFAST
     Route: 048
     Dates: start: 20201006
  25. PRAVASTATIN. [Concomitant]
     Active Substance: PRAVASTATIN
     Dosage: 20 MILLIGRAM, QD
     Route: 048
     Dates: start: 20190820
  26. MONTELUKAST SODIUM. [Concomitant]
     Active Substance: MONTELUKAST SODIUM
     Dosage: 10 MILLIGRAM, QD IN EVENING
     Route: 048
  27. ISOSORBIDE MONONITRATE. [Concomitant]
     Active Substance: ISOSORBIDE MONONITRATE
     Dosage: 30 MILLIGRAM, QD IN MORNING
     Route: 048
  28. METFORMIN HCL [Concomitant]
     Active Substance: METFORMIN HYDROCHLORIDE
     Dosage: 1000 MILLIGRAM, BID WITH MORNING AND EVENING MEALS
     Route: 048
     Dates: start: 20200925
  29. LOVAZA [Concomitant]
     Active Substance: OMEGA-3-ACID ETHYL ESTERS
     Dosage: 1 GRAM CAP, TAKE 2 CAP EVERY 2 DAYS
     Route: 048
     Dates: start: 20190918
  30. NUPLAZID [Suspect]
     Active Substance: PIMAVANSERIN TARTRATE
     Indication: PARKINSON^S DISEASE PSYCHOSIS
     Dosage: 34 MILLIGRAM, QD
     Route: 048
     Dates: start: 20191011
  31. ASPIRIN 81 [Concomitant]
     Active Substance: ASPIRIN
     Dosage: 81 MILLIGRAM, QD
     Route: 048
  32. METFORMIN HCL [Concomitant]
     Active Substance: METFORMIN HYDROCHLORIDE
     Dosage: 1000 MILLIGRAM, BID WITH MORNING AND EVENING MEALS
     Route: 048
     Dates: start: 20190706, end: 2019
  33. GLIPIZIDE. [Concomitant]
     Active Substance: GLIPIZIDE
     Dosage: 10 MILLIGRAM, QD WITH BREAKFAST
     Route: 048
     Dates: start: 20210728
  34. MUPIROCIN. [Concomitant]
     Active Substance: MUPIROCIN
     Dosage: 2% TOPICAL CREAM, 2 TIMES QD FOR 10 DAYS
     Route: 061
     Dates: start: 20191011, end: 20191020
  35. TYLENOL [Concomitant]
     Active Substance: ACETAMINOPHEN
     Dosage: 500 MILLIGRAM, PRN, EVERY 6 HRS AS NEEDED
     Dates: start: 20191011
  36. AMLODIPINE BESYLATE. [Concomitant]
     Active Substance: AMLODIPINE BESYLATE
     Dosage: 5 MILLIGRAM, QD
     Route: 048
     Dates: start: 20200925
  37. MIRALAX [Concomitant]
     Active Substance: POLYETHYLENE GLYCOL 3350
     Dosage: 17 GRAM, QD MIXED WITH 8 OZ. WATER, JUICE, SODA, COFFEE, TEA
     Route: 048
  38. NYSTATIN. [Concomitant]
     Active Substance: NYSTATIN
     Dosage: 100,000 UNIT/GRAM, BID
     Route: 061
  39. FUROSEMIDE. [Concomitant]
     Active Substance: FUROSEMIDE
     Dosage: 20 MILLIGRAM, QD
     Route: 048
  40. CBD OIL [Concomitant]
     Active Substance: CANNABIDIOL\HERBALS
  41. CARBIDOPA/LEVODOPA [Concomitant]
     Active Substance: CARBIDOPA\LEVODOPA
     Dosage: 25 MG/100 MG, 1 AND HALF TAB 4 TIMES A DAY
     Dates: start: 20190823, end: 20191014
  42. HYOSCYAMINE SULFATE. [Concomitant]
     Active Substance: HYOSCYAMINE SULFATE
     Dosage: 0.125 MILLIGRAM, 1 TAB, EVERY 4 HRS AS NEEDED
     Route: 048
     Dates: start: 20190918
  43. HYDROCHLOROTHIAZIDE. [Concomitant]
     Active Substance: HYDROCHLOROTHIAZIDE
     Dosage: 25 MILLIGRAM, QD
     Route: 048
     Dates: start: 20190722
  44. NYSTOP [Concomitant]
     Active Substance: NYSTATIN
     Dosage: 100,000 UNIT/GRAM, BID
     Route: 061
     Dates: start: 20191011
  45. TRIAMCINOLONE ACETONIDE. [Concomitant]
     Active Substance: TRIAMCINOLONE ACETONIDE
     Dosage: 0.5%, APPLY 2 TIMES EVERY DAY, TO AFFECTED AREA
     Route: 061
  46. CANNABIDIOL [Concomitant]
     Active Substance: CANNABIDIOL

REACTIONS (1)
  - Malaise [Recovered/Resolved]
